FAERS Safety Report 13351392 (Version 2)
Quarter: 2017Q1

REPORT INFORMATION
  Report Type: Spontaneous
  Country: US (occurrence: US)
  Receive Date: 20170320
  Receipt Date: 20170321
  Transmission Date: 20170429
  Serious: Yes (Hospitalization)
  Sender: FDA-Public Use
  Company Number: US-INSYS THERAPEUTICS, INC-INS201703-000192

PATIENT
  Age: 61 Year
  Sex: Female

DRUGS (7)
  1. PROCRIT [Concomitant]
     Active Substance: ERYTHROPOIETIN
  2. SUBSYS [Suspect]
     Active Substance: FENTANYL
     Indication: PAIN
     Route: 060
     Dates: start: 20161103
  3. AVASTIN [Concomitant]
     Active Substance: BEVACIZUMAB
  4. CARBOPLATIN. [Concomitant]
     Active Substance: CARBOPLATIN
  5. ALIMTA [Concomitant]
     Active Substance: PEMETREXED DISODIUM
  6. XGEVA [Concomitant]
     Active Substance: DENOSUMAB
  7. NEULASTA [Concomitant]
     Active Substance: PEGFILGRASTIM

REACTIONS (1)
  - Hospitalisation [Unknown]

NARRATIVE: CASE EVENT DATE: 20170301
